FAERS Safety Report 14708656 (Version 1)
Quarter: 2018Q2

REPORT INFORMATION
  Report Type: Spontaneous
  Country: US (occurrence: US)
  Receive Date: 20180403
  Receipt Date: 20180403
  Transmission Date: 20180711
  Serious: No
  Sender: FDA-Public Use
  Company Number: US-GLAXOSMITHKLINE-US2018GSK055607

PATIENT
  Sex: Female

DRUGS (4)
  1. ANORO ELLIPTA [Suspect]
     Active Substance: UMECLIDINIUM BROMIDE\VILANTEROL TRIFENATATE
     Indication: PRODUCT USED FOR UNKNOWN INDICATION
  2. LATUDA [Interacting]
     Active Substance: LURASIDONE HYDROCHLORIDE
     Indication: PRODUCT USED FOR UNKNOWN INDICATION
     Dosage: 15 MG, QD
  3. LITHIUM CARBONATE. [Concomitant]
     Active Substance: LITHIUM CARBONATE
  4. PROGESTERONE. [Concomitant]
     Active Substance: PROGESTERONE

REACTIONS (5)
  - Peripheral swelling [Unknown]
  - Chromaturia [Unknown]
  - Pollakiuria [Unknown]
  - Insomnia [Unknown]
  - Drug interaction [Unknown]
